FAERS Safety Report 5736705-X (Version None)
Quarter: 2008Q2

REPORT INFORMATION
  Report Type: 
  Country: None (occurrence: None)
  Receive Date: 20080508
  Receipt Date: 20080429
  Transmission Date: 20081010
  Serious: Yes (Other)
  Sender: FDA-Public Use
  Company Number: 100#03#2008-02437

PATIENT
  Age: 57 Year
  Sex: Female

DRUGS (4)
  1. PRAVASTATIN [Suspect]
     Indication: DRUG USE FOR UNKNOWN INDICATION
     Dosage: 10 MG ORAL; 20 MG ORAL
     Route: 048
  2. PRAVASTATIN [Suspect]
     Indication: DRUG USE FOR UNKNOWN INDICATION
     Dosage: 10 MG ORAL; 20 MG ORAL
     Route: 048
  3. ACETYLSALICYLIC ACID SRT [Concomitant]
  4. ERYTHROMYCIN [Concomitant]

REACTIONS (9)
  - ABSCESS [None]
  - APATHY [None]
  - BACK PAIN [None]
  - DECREASED APPETITE [None]
  - HYPOAESTHESIA [None]
  - MALAISE [None]
  - MUSCULOSKELETAL PAIN [None]
  - PARAESTHESIA [None]
  - TRANSIENT ISCHAEMIC ATTACK [None]
